FAERS Safety Report 11178031 (Version 4)
Quarter: 2015Q3

REPORT INFORMATION
  Report Type: Spontaneous
  Country: FI (occurrence: FI)
  Receive Date: 20150610
  Receipt Date: 20150729
  Transmission Date: 20151125
  Serious: Yes (Other)
  Sender: FDA-Public Use
  Company Number: FI-ACTELION-A-CH2015-118139

PATIENT
  Age: 32 Year
  Sex: Female

DRUGS (7)
  1. AMITRID [Suspect]
     Active Substance: AMILORIDE HYDROCHLORIDE\HYDROCHLOROTHIAZIDE
     Indication: SWELLING
     Dosage: UNK
     Route: 048
     Dates: start: 2003
  2. MAREVAN [Suspect]
     Active Substance: WARFARIN SODIUM
     Indication: EMBOLISM
     Dosage: 3 MG, UNK
     Route: 065
     Dates: start: 2001
  3. PANADOL FORTE [Suspect]
     Active Substance: ACETAMINOPHEN\CAFFEINE
     Indication: DYSMENORRHOEA
     Dosage: 1 G, PRN
     Route: 065
     Dates: start: 2010
  4. ADALAT [Suspect]
     Active Substance: NIFEDIPINE
     Indication: PULMONARY ARTERIAL HYPERTENSION
     Dosage: 60 MG, BID
     Route: 048
     Dates: start: 201002
  5. DIGOXIN. [Suspect]
     Active Substance: DIGOXIN
     Indication: PRODUCT USED FOR UNKNOWN INDICATION
     Dosage: 0.125 MG, OD
     Route: 048
  6. OPSUMIT [Suspect]
     Active Substance: MACITENTAN
     Indication: PULMONARY ARTERIAL HYPERTENSION
     Dosage: 10 MG, OD
     Route: 048
     Dates: start: 20150119, end: 20150528
  7. QLAIRA [Suspect]
     Active Substance: DIENOGEST\ESTRADIOL VALERATE
     Indication: CONTRACEPTION
     Dosage: UNK, OD
     Route: 048
     Dates: start: 2011

REACTIONS (5)
  - Alanine aminotransferase increased [Recovered/Resolved]
  - Liver function test abnormal [Recovered/Resolved]
  - Drug interaction [Unknown]
  - Gamma-glutamyltransferase increased [Recovered/Resolved]
  - Aspartate aminotransferase increased [Recovered/Resolved]

NARRATIVE: CASE EVENT DATE: 20150512
